FAERS Safety Report 9162550 (Version 1)
Quarter: 2013Q1

REPORT INFORMATION
  Report Type: Spontaneous
  Country: ZA (occurrence: None)
  Receive Date: 20130215
  Receipt Date: 20130215
  Transmission Date: 20140127
  Serious: Yes (Life-Threatening, Hospitalization)
  Sender: FDA-Public Use
  Company Number: AMIT20130003

PATIENT
  Age: 20 Year
  Sex: Female

DRUGS (2)
  1. AMITRIPTYLINE HCL [Suspect]
     Route: 048
  2. Q-PAP TABLETS (PARACETAMOL) (UNKNOWN) (PARACETAMOL) [Concomitant]

REACTIONS (9)
  - Status epilepticus [None]
  - Haemodynamic instability [None]
  - Overdose [None]
  - Somnolence [None]
  - Heart rate increased [None]
  - Bundle branch block right [None]
  - Grand mal convulsion [None]
  - Respiratory arrest [None]
  - Toxicity to various agents [None]
